FAERS Safety Report 13818702 (Version 2)
Quarter: 2018Q1

REPORT INFORMATION
  Report Type: Report from Study
  Country: US (occurrence: US)
  Receive Date: 20170731
  Receipt Date: 20180201
  Transmission Date: 20180508
  Serious: No
  Sender: FDA-Public Use
  Company Number: US-EXELIXIS-CABO-17007936

PATIENT
  Sex: Male

DRUGS (10)
  1. COLACE [Concomitant]
     Active Substance: DOCUSATE SODIUM
  2. AFINITOR [Concomitant]
     Active Substance: EVEROLIMUS
  3. CENTRUM [Concomitant]
     Active Substance: VITAMINS
  4. SENNA [Concomitant]
     Active Substance: SENNA LEAF\SENNOSIDES\SENNOSIDES A AND B
  5. NORCO [Concomitant]
     Active Substance: ACETAMINOPHEN\HYDROCODONE BITARTRATE
  6. MELATONIN [Concomitant]
     Active Substance: MELATONIN
  7. MAG OXIDE [Concomitant]
     Active Substance: MAGNESIUM OXIDE
  8. CABOMETYX [Suspect]
     Active Substance: CABOZANTINIB S-MALATE
     Indication: RENAL CANCER
     Dosage: 60 MG, QD
     Route: 048
     Dates: start: 20161010, end: 20170106
  9. MARINOL [Concomitant]
     Active Substance: DRONABINOL
  10. CARISOPRODOL. [Concomitant]
     Active Substance: CARISOPRODOL

REACTIONS (1)
  - Chest discomfort [Recovered/Resolved]
